FAERS Safety Report 13047479 (Version 1)
Quarter: 2016Q4

REPORT INFORMATION
  Report Type: Spontaneous
  Country: US (occurrence: US)
  Receive Date: 20161220
  Receipt Date: 20161220
  Transmission Date: 20170207
  Serious: Yes (Other)
  Sender: FDA-Public Use
  Company Number: US-BAUSCH-BL-2016-031609

PATIENT
  Sex: Male

DRUGS (2)
  1. SEROQUEL [Suspect]
     Active Substance: QUETIAPINE FUMARATE
     Indication: PRODUCT USED FOR UNKNOWN INDICATION
     Route: 065
  2. XIFAXAN [Suspect]
     Active Substance: RIFAXIMIN
     Indication: PRODUCT USED FOR UNKNOWN INDICATION
     Route: 065

REACTIONS (10)
  - Tenderness [Unknown]
  - Oedema peripheral [Unknown]
  - Ammonia decreased [Unknown]
  - Parkinson^s disease [Unknown]
  - Fall [Unknown]
  - Back disorder [Unknown]
  - Immobile [Unknown]
  - Drug intolerance [Unknown]
  - Contusion [Unknown]
  - Rectal haemorrhage [Unknown]
